FAERS Safety Report 5507545-1 (Version None)
Quarter: 2007Q4

REPORT INFORMATION
  Report Type: 
  Country: None (occurrence: None)
  Receive Date: 20071102
  Receipt Date: 20071018
  Transmission Date: 20080405
  Serious: Yes (Death)
  Sender: FDA-Public Use
  Company Number: L07-AUT-05676-01

PATIENT
  Age: 75 Year
  Sex: Female
  Weight: 47 kg

DRUGS (6)
  1. CITALOPRAM HYDROBROMIDE [Suspect]
  2. DIGITOXIN TAB [Suspect]
  3. BISOPROLOL FUMARATE [Suspect]
  4. PROTHIPENDYL [Suspect]
  5. ACETYLCYSTEINE [Suspect]
  6. PANTOPRAZOLE SODIUM [Suspect]

REACTIONS (10)
  - ATRIAL FIBRILLATION [None]
  - BLOOD LACTATE DEHYDROGENASE INCREASED [None]
  - BLOOD POTASSIUM DECREASED [None]
  - BLOOD PRESSURE IMMEASURABLE [None]
  - ELECTROCARDIOGRAM ST SEGMENT ELEVATION [None]
  - HYPERCAPNIA [None]
  - HYPOTENSION [None]
  - LOSS OF CONSCIOUSNESS [None]
  - NAUSEA [None]
  - PULSE ABSENT [None]
